FAERS Safety Report 8652337 (Version 2)
Quarter: 2013Q3

REPORT INFORMATION
  Report Type: Spontaneous
  Country: US (occurrence: US)
  Receive Date: 20120706
  Receipt Date: 20130930
  Transmission Date: 20140515
  Serious: Yes (Hospitalization, Other)
  Sender: FDA-Public Use
  Company Number: US-PFIZER INC-2012161126

PATIENT
  Age: 38 Year
  Sex: Male

DRUGS (3)
  1. CHANTIX [Suspect]
     Indication: SMOKING CESSATION THERAPY
     Dosage: UNK
     Dates: start: 20071001, end: 20080101
  2. KEPPRA [Concomitant]
     Dosage: 1000 MG, 2X/DAY
  3. ATENOLOL [Concomitant]
     Dosage: 25 MG, UNK

REACTIONS (4)
  - Suicide attempt [Unknown]
  - Depression [Unknown]
  - Anxiety [Unknown]
  - Nightmare [Unknown]
